FAERS Safety Report 18506256 (Version 20)
Quarter: 2025Q1

REPORT INFORMATION
  Report Type: Report from Study
  Country: CA (occurrence: CA)
  Receive Date: 20201116
  Receipt Date: 20250305
  Transmission Date: 20250408
  Serious: Yes (Other)
  Sender: TAKEDA
  Company Number: CA-SHIRE-CA202019788

PATIENT
  Age: 47 Year
  Sex: Female

DRUGS (20)
  1. ICATIBANT [Suspect]
     Active Substance: ICATIBANT ACETATE
     Indication: Hereditary angioedema
  2. ICATIBANT [Suspect]
     Active Substance: ICATIBANT ACETATE
     Indication: Hereditary angioedema with C1 esterase inhibitor deficiency
  3. ICATIBANT [Suspect]
     Active Substance: ICATIBANT ACETATE
  4. ICATIBANT [Suspect]
     Active Substance: ICATIBANT ACETATE
  5. ICATIBANT [Suspect]
     Active Substance: ICATIBANT ACETATE
  6. ICATIBANT [Suspect]
     Active Substance: ICATIBANT ACETATE
  7. ICATIBANT [Suspect]
     Active Substance: ICATIBANT ACETATE
  8. ICATIBANT [Suspect]
     Active Substance: ICATIBANT ACETATE
  9. ICATIBANT [Suspect]
     Active Substance: ICATIBANT ACETATE
  10. ICATIBANT [Suspect]
     Active Substance: ICATIBANT ACETATE
  11. ICATIBANT [Suspect]
     Active Substance: ICATIBANT ACETATE
  12. ICATIBANT [Suspect]
     Active Substance: ICATIBANT ACETATE
  13. ICATIBANT [Suspect]
     Active Substance: ICATIBANT ACETATE
  14. ICATIBANT [Suspect]
     Active Substance: ICATIBANT ACETATE
  15. ICATIBANT [Suspect]
     Active Substance: ICATIBANT ACETATE
  16. ICATIBANT [Suspect]
     Active Substance: ICATIBANT ACETATE
  17. ICATIBANT [Suspect]
     Active Substance: ICATIBANT ACETATE
  18. LANADELUMAB [Suspect]
     Active Substance: LANADELUMAB
     Indication: Hereditary angioedema with C1 esterase inhibitor deficiency
     Dosage: 300 MILLIGRAM, Q2WEEKS
     Dates: start: 20190912
  19. LANADELUMAB [Suspect]
     Active Substance: LANADELUMAB
     Dosage: 2 DOSAGE FORM, Q2WEEKS
  20. LANADELUMAB [Suspect]
     Active Substance: LANADELUMAB
     Dosage: 2 DOSAGE FORM, Q2WEEKS

REACTIONS (9)
  - Choking [Unknown]
  - Sialoadenitis [Unknown]
  - Menopausal symptoms [Unknown]
  - Nervousness [Unknown]
  - Product use in unapproved indication [Unknown]
  - Stress [Unknown]
  - Illness [Unknown]
  - Product use issue [Unknown]
  - Hereditary angioedema [Recovered/Resolved]

NARRATIVE: CASE EVENT DATE: 20190912
